FAERS Safety Report 24248330 (Version 1)
Quarter: 2024Q3

REPORT INFORMATION
  Report Type: Spontaneous
  Country: US (occurrence: None)
  Receive Date: 20240823
  Receipt Date: 20240823
  Transmission Date: 20241016
  Serious: No
  Sender: Public
  Company Number: None

PATIENT

DRUGS (3)
  1. METOPROLOL [Suspect]
     Active Substance: METOPROLOL
  2. AMARYL [Suspect]
     Active Substance: GLIMEPIRIDE
  3. INSULIN HUMAN [Suspect]
     Active Substance: INSULIN HUMAN

REACTIONS (5)
  - Flank pain [None]
  - Dysuria [None]
  - Hypoglycaemia [None]
  - Accidental overdose [None]
  - Product prescribing issue [None]
